FAERS Safety Report 4880875-2 (Version None)
Quarter: 2005Q4

REPORT INFORMATION
  Report Type: 
  Country: None (occurrence: None)
  Receive Date: 20051223
  Receipt Date: 20051102
  Transmission Date: 20060501
  Serious: No
  Sender: FDA-Public Use
  Company Number: 05P-163-0316149-00

PATIENT
  Age: 70 Year
  Sex: Female
  Weight: 74.8435 kg

DRUGS (10)
  1. HUMIRA [Suspect]
     Indication: RHEUMATOID ARTHRITIS
     Dosage: 40 MG, 1 IN 2 WK, SUBCUTANEOUS
     Route: 058
     Dates: start: 20040101
  2. VERAPAMIL HYDROCHLORIDE [Concomitant]
  3. ADALIDE [Concomitant]
  4. CLONIDINE [Concomitant]
  5. GEMFIBROZIL [Concomitant]
  6. GABAPENTIN [Concomitant]
  7. MAPROTILINE HYDROCHLORIDE [Concomitant]
  8. CRESTOR [Concomitant]
  9. GENTAL [Concomitant]
  10. ESOMEPRAZOLE [Concomitant]

REACTIONS (2)
  - EYE INFECTION STAPHYLOCOCCAL [None]
  - PUPILLARY DISORDER [None]
